FAERS Safety Report 4320863-8 (Version None)
Quarter: 2004Q1

REPORT INFORMATION
  Report Type: 
  Country: None (occurrence: None)
  Receive Date: 20040318
  Receipt Date: 20040219
  Transmission Date: 20041129
  Serious: No
  Sender: FDA-Public Use
  Company Number: 7591

PATIENT
  Age: 60 Year
  Sex: Female

DRUGS (2)
  1. METHOTREXATE [Suspect]
     Dosage: 6 MG WEEKLY
     Dates: start: 20040210, end: 20040218
  2. PREDNISOLONE [Concomitant]

REACTIONS (6)
  - BONE MARROW DEPRESSION [None]
  - DISSEMINATED INTRAVASCULAR COAGULATION [None]
  - NEUTROPHIL COUNT ABNORMAL [None]
  - PLATELET COUNT DECREASED [None]
  - SEPSIS [None]
  - WHITE BLOOD CELL COUNT DECREASED [None]
